FAERS Safety Report 21199161 (Version 1)
Quarter: 2022Q3

REPORT INFORMATION
  Report Type: Spontaneous
  Country: FR (occurrence: FR)
  Receive Date: 20220811
  Receipt Date: 20220811
  Transmission Date: 20221026
  Serious: Yes (Other)
  Sender: FDA-Public Use
  Company Number: None

PATIENT
  Age: 70 Year
  Sex: Male
  Weight: 76.45 kg

DRUGS (10)
  1. ATORVASTATIN [Suspect]
     Active Substance: ATORVASTATIN
     Indication: Product used for unknown indication
     Dosage: UNIT DOSE :  10MG,  FREQUENCY TIME : 1 DAY,THERAPY START DATE  : NASK
     Route: 065
     Dates: end: 20211026
  2. FENOFIBRATE [Suspect]
     Active Substance: FENOFIBRATE
     Indication: Hyperlipidaemia
     Dosage: UNIT DOSE : 160MG, FREQUENCY TIME : 1 DAY , DURATION :34 DAYS
     Route: 065
     Dates: start: 20210824, end: 20210927
  3. FENOFIBRATE [Suspect]
     Active Substance: FENOFIBRATE
     Dosage: UNIT DOSE : 300MG, FREQUENCY TIME : 1 DAY , DURATION :28 DAYS
     Route: 065
     Dates: start: 20210928, end: 20211026
  4. TARGRETIN [Suspect]
     Active Substance: BEXAROTENE
     Indication: Cutaneous T-cell lymphoma
     Dosage: 300 MILLIGRAM DAILY; OR 4 TABLETS OF 75 MG PER DAY, UNIT DOSE : 300MG, FREQUENCY TIME : 1 DAY , DURA
     Route: 065
     Dates: start: 20211013, end: 20211026
  5. TARGRETIN [Suspect]
     Active Substance: BEXAROTENE
     Dosage: 300 MILLIGRAM DAILY; OR 4 TABLETS OF 75 MG PER DAY, UNIT DOSE : 300MG, FREQUENCY TIME : 1 DAY , DURA
     Route: 065
     Dates: start: 20210824, end: 20210927
  6. TARGRETIN [Suspect]
     Active Substance: BEXAROTENE
     Dosage: OR 4 TABLETS OF 75 MG PER DAY, UNIT DOSE : 375MG, FREQUENCY TIME : 1 DAY , DURATION :14 DAYS
     Route: 065
     Dates: start: 20210928, end: 20211012
  7. BISOPROLOL [Concomitant]
     Active Substance: BISOPROLOL
     Indication: Atrial fibrillation
     Dosage: UNIT DOSE : 1.25MG ,FREQUENCY TIME : 1 DAY
  8. MOGAMULIZUMAB [Concomitant]
     Active Substance: MOGAMULIZUMAB
     Indication: Cutaneous T-cell lymphoma
     Dosage: FREQUENCY TIME : 2 WEEKS
     Dates: start: 20210211
  9. XARELTO [Concomitant]
     Active Substance: RIVAROXABAN
     Indication: Atrial fibrillation
     Dosage: THERAPY START DATE  : NASK,FREQUENCY TIME : 1 DAY
  10. LEVOTHYROXINE [Concomitant]
     Active Substance: LEVOTHYROXINE
     Indication: Hypothyroidism
     Dosage: UNIT DOSE :75 MCG , FREQUENCY TIME : 1 DAY ,  THERAPY START DATE  : NASK,

REACTIONS (2)
  - Hepatic cytolysis [Recovered/Resolved]
  - Gamma-glutamyltransferase increased [Recovered/Resolved]

NARRATIVE: CASE EVENT DATE: 20211022
